FAERS Safety Report 10204676 (Version 1)
Quarter: 2014Q2

REPORT INFORMATION
  Report Type: Spontaneous
  Country: US (occurrence: US)
  Receive Date: 20140529
  Receipt Date: 20140529
  Transmission Date: 20141212
  Serious: Yes (Other)
  Sender: FDA-Public Use
  Company Number: US-GLAXOSMITHKLINE-A1074365A

PATIENT
  Age: 56 Year
  Sex: Male
  Weight: 104.5 kg

DRUGS (7)
  1. ADVAIR HFA [Suspect]
     Indication: CHRONIC OBSTRUCTIVE PULMONARY DISEASE
     Dosage: 1PUFF TWICE PER DAY
     Route: 055
     Dates: start: 2006
  2. VENTOLIN [Suspect]
     Indication: CHRONIC OBSTRUCTIVE PULMONARY DISEASE
     Dosage: 2PUFF AS REQUIRED
     Route: 055
     Dates: start: 2006
  3. SPIRIVA [Concomitant]
  4. MOBIC [Concomitant]
  5. FLOMAX [Concomitant]
  6. STOOL SOFTENER [Concomitant]
  7. MIRALAX [Concomitant]

REACTIONS (7)
  - Transient ischaemic attack [Not Recovered/Not Resolved]
  - Abasia [Not Recovered/Not Resolved]
  - Progressive supranuclear palsy [Not Recovered/Not Resolved]
  - Blindness [Not Recovered/Not Resolved]
  - Diplopia [Not Recovered/Not Resolved]
  - Aphasia [Not Recovered/Not Resolved]
  - Weight decreased [Not Recovered/Not Resolved]
